FAERS Safety Report 26195902 (Version 1)
Quarter: 2025Q4

REPORT INFORMATION
  Report Type: Spontaneous
  Country: US (occurrence: US)
  Receive Date: 20251224
  Receipt Date: 20251224
  Transmission Date: 20260117
  Serious: Yes (Hospitalization, Other)
  Sender: BOSTON SCIENTIFIC
  Company Number: US-BSC-2025000119

PATIENT
  Age: 44 Year
  Sex: Male

DRUGS (1)
  1. POLIDOCANOL [Suspect]
     Active Substance: POLIDOCANOL
     Indication: Varicose vein

REACTIONS (2)
  - Pulmonary embolism [Recovering/Resolving]
  - Pneumonia viral [Recovering/Resolving]
